FAERS Safety Report 15988392 (Version 6)
Quarter: 2020Q1

REPORT INFORMATION
  Report Type: Report from Study
  Country: DE (occurrence: DE)
  Receive Date: 20190221
  Receipt Date: 20200213
  Transmission Date: 20200409
  Serious: No
  Sender: FDA-Public Use
  Company Number: DE-ROCHE-2263852

PATIENT
  Age: 24 Year
  Sex: Male
  Weight: 130 kg

DRUGS (1)
  1. OCRELIZUMAB. [Suspect]
     Active Substance: OCRELIZUMAB
     Indication: MULTIPLE SCLEROSIS
     Dosage: MOST RECENT DOSE WAS RECEIVED ON 26/JUL/2018
     Route: 042
     Dates: start: 20180712

REACTIONS (1)
  - Otitis media [Recovered/Resolved]

NARRATIVE: CASE EVENT DATE: 20181201
